FAERS Safety Report 25655864 (Version 1)
Quarter: 2025Q3

REPORT INFORMATION
  Report Type: Spontaneous
  Country: US (occurrence: US)
  Receive Date: 20250807
  Receipt Date: 20250807
  Transmission Date: 20251020
  Serious: No
  Sender: DR REDDYS
  Company Number: US-DRL-USA-USA/2025/07/010568

PATIENT
  Age: 29 Year
  Sex: Male

DRUGS (8)
  1. IMATINIB [Suspect]
     Active Substance: IMATINIB
     Indication: Haematological neoplasm
     Route: 065
  2. CYCLOPHOSPHAMIDE [Suspect]
     Active Substance: CYCLOPHOSPHAMIDE
     Indication: Haematological neoplasm
     Route: 065
  3. MIDOSTAURIN [Suspect]
     Active Substance: MIDOSTAURIN
     Indication: Haematological neoplasm
     Route: 065
  4. RUXOLITINIB [Suspect]
     Active Substance: RUXOLITINIB
     Indication: Haematological neoplasm
     Route: 065
  5. CLADRIBINE [Suspect]
     Active Substance: CLADRIBINE
     Indication: Haematological neoplasm
     Route: 065
  6. AVAPRITINIB [Suspect]
     Active Substance: AVAPRITINIB
     Indication: Haematological neoplasm
     Route: 065
  7. PREDNISONE [Suspect]
     Active Substance: PREDNISONE
     Indication: Haematological neoplasm
     Route: 065
  8. COBIMETINIB [Suspect]
     Active Substance: COBIMETINIB
     Indication: Haematological neoplasm
     Route: 065

REACTIONS (5)
  - Nausea [Unknown]
  - Dyspepsia [Unknown]
  - Abdominal pain [Unknown]
  - Bone pain [Unknown]
  - Fatigue [Unknown]
